FAERS Safety Report 13503989 (Version 1)
Quarter: 2017Q2

REPORT INFORMATION
  Report Type: Spontaneous
  Country: US (occurrence: US)
  Receive Date: 20170502
  Receipt Date: 20170502
  Transmission Date: 20170830
  Serious: No
  Sender: FDA-Public Use
  Company Number: US-CELGENEUS-USA-20170407564

PATIENT
  Sex: Female

DRUGS (1)
  1. OTEZLA [Suspect]
     Active Substance: APREMILAST
     Indication: PSORIATIC ARTHROPATHY
     Dosage: OTEZLA 10MG OR 20MG OR 30MG
     Route: 048
     Dates: start: 20170120, end: 20170420

REACTIONS (2)
  - Nausea [Unknown]
  - Drug ineffective [Unknown]
